FAERS Safety Report 5520143-9 (Version None)
Quarter: 2007Q4

REPORT INFORMATION
  Report Type: 
  Country: None (occurrence: None)
  Receive Date: 20071116
  Receipt Date: 20071105
  Transmission Date: 20080405
  Serious: Yes (Hospitalization)
  Sender: FDA-Public Use
  Company Number: FR-BRISTOL-MYERS SQUIBB COMPANY-13979711

PATIENT
  Age: 62 Year
  Sex: Male

DRUGS (6)
  1. ENDOXAN [Suspect]
     Indication: LYMPHOMA
     Route: 042
     Dates: start: 20070503, end: 20070503
  2. METHOTREXATE [Suspect]
     Indication: LYMPHOMA
     Route: 042
     Dates: start: 20070502, end: 20070502
  3. DOXORUBICIN HCL [Suspect]
     Indication: LYMPHOMA
     Route: 042
     Dates: start: 20070503, end: 20070503
  4. MABTHERA [Suspect]
     Indication: LYMPHOMA
     Route: 042
     Dates: start: 20070501, end: 20070507
  5. VINCRISTINE [Suspect]
     Indication: LYMPHOMA
     Route: 042
     Dates: start: 20070502, end: 20070507
  6. CORTANCYL [Concomitant]
     Route: 048

REACTIONS (1)
  - FEBRILE BONE MARROW APLASIA [None]
